FAERS Safety Report 5339645-3 (Version None)
Quarter: 2007Q2

REPORT INFORMATION
  Report Type: 
  Country: None (occurrence: None)
  Receive Date: 20070525
  Receipt Date: 20070510
  Transmission Date: 20071010
  Serious: Yes (Hospitalization)
  Sender: FDA-Public Use
  Company Number: 2007US-07554

PATIENT
  Age: 20 Year
  Sex: Female

DRUGS (3)
  1. ISOTRETINOIN [Suspect]
     Indication: ACNE
     Dosage: 30 MG, BID, ORAL
     Route: 048
     Dates: start: 20060314, end: 20060719
  2. ORTHO CYCLEN-28 [Concomitant]
  3. TRIAMCINOLONE [Concomitant]

REACTIONS (2)
  - COLITIS [None]
  - INFECTIOUS MONONUCLEOSIS [None]
